FAERS Safety Report 8492433-1 (Version None)
Quarter: 2012Q3

REPORT INFORMATION
  Report Type: 
  Country: None (occurrence: None)
  Receive Date: 20120706
  Receipt Date: 20120702
  Transmission Date: 20120928
  Serious: Yes (Other)
  Sender: FDA-Public Use
  Company Number: BR-PFIZER INC-2012158066

PATIENT
  Sex: Male

DRUGS (1)
  1. ATORVASTATIN CALCIUM [Suspect]
     Indication: BLOOD CHOLESTEROL INCREASED
     Dosage: HALF OF A 10MG TABLET DAILY
     Route: 048
     Dates: start: 20000101

REACTIONS (2)
  - VASCULAR CALCIFICATION [None]
  - CORONARY ARTERY DISEASE [None]
